FAERS Safety Report 4392882-7 (Version None)
Quarter: 2004Q3

REPORT INFORMATION
  Report Type: 
  Country: None (occurrence: None)
  Receive Date: 20040702
  Receipt Date: 20040319
  Transmission Date: 20050211
  Serious: Yes (Other)
  Sender: FDA-Public Use
  Company Number: 2004UW05373

PATIENT
  Age: 81 Year
  Sex: Female
  Weight: 63.5036 kg

DRUGS (3)
  1. CRESTOR [Suspect]
     Dosage: 10 MG DAILY PO
     Route: 048
  2. LISINOPRIL [Concomitant]
  3. NO MATCH [Concomitant]

REACTIONS (4)
  - ARTHROPATHY [None]
  - ASTHENIA [None]
  - DIFFICULTY IN WALKING [None]
  - MOVEMENT DISORDER [None]
